FAERS Safety Report 8076111-9 (Version None)
Quarter: 2012Q1

REPORT INFORMATION
  Report Type: 
  Country: None (occurrence: None)
  Receive Date: 20120127
  Receipt Date: 20110912
  Transmission Date: 20120608
  Serious: No
  Sender: FDA-Public Use
  Company Number: US-GLAXOSMITHKLINE-A0944236A

PATIENT
  Age: 44 Year
  Sex: Female
  Weight: 78.2 kg

DRUGS (4)
  1. ADDERALL 5 [Suspect]
  2. ALLI [Suspect]
     Indication: WEIGHT DECREASED
     Dates: start: 20110903
  3. WELLBUTRIN [Suspect]
  4. BIRTH CONTROL PILL [Concomitant]

REACTIONS (6)
  - RECTAL DISCHARGE [None]
  - DRUG INTERACTION [None]
  - TREATMENT NONCOMPLIANCE [None]
  - CHANGE OF BOWEL HABIT [None]
  - ABDOMINAL PAIN UPPER [None]
  - FAECES DISCOLOURED [None]
